FAERS Safety Report 9168545 (Version 1)
Quarter: 2013Q1

REPORT INFORMATION
  Report Type: Spontaneous
  Country: FR (occurrence: FR)
  Receive Date: 20130318
  Receipt Date: 20130318
  Transmission Date: 20140127
  Serious: Yes (Life-Threatening, Hospitalization)
  Sender: FDA-Public Use
  Company Number: FR-ASTRAZENECA-2013SE16917

PATIENT
  Age: 14041 Day
  Sex: Male

DRUGS (6)
  1. MOPRAL [Suspect]
     Indication: SUICIDE ATTEMPT
     Route: 048
     Dates: start: 20120528, end: 20120528
  2. BROMAZEPAM [Suspect]
     Indication: SUICIDE ATTEMPT
     Route: 048
     Dates: start: 20120528, end: 20120528
  3. PARACETAMOL [Suspect]
     Indication: SUICIDE ATTEMPT
     Dosage: 5 BOXES OF PARACETAMOL 1G (PER OS) MORE 1 BOX OF DAFALGAN 1G (PER OS) OR TOTALLY 48G OF PARACETAMOL
     Route: 048
     Dates: start: 20120528, end: 20120528
  4. EFFEXOR [Suspect]
     Indication: SUICIDE ATTEMPT
     Route: 048
     Dates: start: 20120528, end: 20120528
  5. ATARAX [Suspect]
     Indication: SUICIDE ATTEMPT
     Route: 048
     Dates: start: 20120528, end: 20120528
  6. ZOPICLONE [Suspect]
     Indication: SUICIDE ATTEMPT
     Dosage: 1 BOX, ONCE/SINGLE ADMINISTRATION
     Route: 048
     Dates: start: 20120528, end: 20120528

REACTIONS (2)
  - Suicide attempt [Unknown]
  - Drug-induced liver injury [Recovering/Resolving]
